FAERS Safety Report 21235913 (Version 1)
Quarter: 2022Q3

REPORT INFORMATION
  Report Type: Spontaneous
  Country: CA (occurrence: CA)
  Receive Date: 20220821
  Receipt Date: 20220821
  Transmission Date: 20221027
  Serious: Yes (Other)
  Sender: FDA-Public Use
  Company Number: CA-JNJFOC-20220455290

PATIENT
  Age: 70 Year
  Sex: Female
  Weight: 33.142 kg

DRUGS (2)
  1. IMODIUM [Suspect]
     Active Substance: LOPERAMIDE HYDROCHLORIDE
     Indication: Diarrhoea
     Route: 065
  2. LONSURF [Suspect]
     Active Substance: TIPIRACIL HYDROCHLORIDE\TRIFLURIDINE
     Indication: Colorectal cancer metastatic
     Route: 048

REACTIONS (6)
  - Constipation [Unknown]
  - Disease progression [Unknown]
  - Diarrhoea [Unknown]
  - Muscle atrophy [Unknown]
  - Red blood cell count decreased [Unknown]
  - White blood cell count decreased [Unknown]
